FAERS Safety Report 5116249-9 (Version None)
Quarter: 2006Q3

REPORT INFORMATION
  Report Type: 
  Country: None (occurrence: None)
  Receive Date: 20060927
  Receipt Date: 20060918
  Transmission Date: 20061208
  Serious: Yes (Hospitalization)
  Sender: FDA-Public Use
  Company Number: GB-GLAXOSMITHKLINE-B0438691A

PATIENT
  Age: 3 Year
  Sex: Male

DRUGS (2)
  1. VENTOLIN [Suspect]
     Indication: ASTHMA
     Route: 055
  2. BECOTIDE [Concomitant]
     Route: 065

REACTIONS (6)
  - BLISTER [None]
  - OEDEMA PERIPHERAL [None]
  - RASH ERYTHEMATOUS [None]
  - SWELLING FACE [None]
  - URTICARIA [None]
  - URTICARIA GENERALISED [None]
